FAERS Safety Report 7434508-1 (Version None)
Quarter: 2011Q2

REPORT INFORMATION
  Report Type: 
  Country: None (occurrence: None)
  Receive Date: 20110425
  Receipt Date: 20110407
  Transmission Date: 20111010
  Serious: Yes (Hospitalization, Other)
  Sender: FDA-Public Use
  Company Number: FR-BAYER-2011-003432

PATIENT
  Age: 75 Year
  Sex: Male
  Weight: 81 kg

DRUGS (6)
  1. NEXAVAR [Suspect]
     Indication: HEPATIC NEOPLASM MALIGNANT
     Dosage: 400 MG, BID
     Route: 048
     Dates: start: 20101001, end: 20101211
  2. UN-ALFA [Concomitant]
  3. LANTUS [Concomitant]
     Indication: DIABETES MELLITUS
     Dosage: 16 IU
     Dates: end: 20110201
  4. DIAMICRON [Concomitant]
     Indication: DIABETES MELLITUS
  5. IDEOS [Concomitant]
  6. METFORMIN [Concomitant]
     Dosage: UNK
     Dates: end: 20110101

REACTIONS (8)
  - MALAISE [None]
  - HYPOCALCAEMIA [None]
  - CONFUSIONAL STATE [None]
  - DIARRHOEA [None]
  - HYPOMAGNESAEMIA [None]
  - TREMOR [None]
  - FALL [None]
  - TETANY [None]
